FAERS Safety Report 21555919 (Version 1)
Quarter: 2022Q4

REPORT INFORMATION
  Report Type: Spontaneous
  Country: US (occurrence: None)
  Receive Date: 20221103
  Receipt Date: 20221103
  Transmission Date: 20230113
  Serious: No
  Sender: FDA-Public Use
  Company Number: None

PATIENT

DRUGS (3)
  1. PREDNISONE [Suspect]
     Active Substance: PREDNISONE
  2. PREDNISONE [Suspect]
     Active Substance: PREDNISONE
  3. PREDNISONE [Suspect]
     Active Substance: PREDNISONE

REACTIONS (5)
  - Product dispensing error [None]
  - Incorrect dose administered [None]
  - Transcription medication error [None]
  - Device computer issue [None]
  - Product communication issue [None]
